FAERS Safety Report 20808088 (Version 7)
Quarter: 2023Q1

REPORT INFORMATION
  Report Type: Report from Study
  Country: US (occurrence: US)
  Receive Date: 20220510
  Receipt Date: 20230103
  Transmission Date: 20230418
  Serious: Yes (Hospitalization)
  Sender: FDA-Public Use
  Company Number: US-GLAXOSMITHKLINE-US2022GSK073458

PATIENT

DRUGS (28)
  1. DOSTARLIMAB [Suspect]
     Active Substance: DOSTARLIMAB
     Indication: Breast cancer
     Dosage: 500 MG, Z (Q3WEEK)
     Route: 042
     Dates: start: 20220216, end: 20220216
  2. DOSTARLIMAB [Suspect]
     Active Substance: DOSTARLIMAB
     Dosage: 500 MG, Z (Q3WEEK)
     Route: 042
     Dates: start: 20220420, end: 20220420
  3. PACLITAXEL [Suspect]
     Active Substance: PACLITAXEL
     Indication: Breast cancer
     Dosage: 420 MG, Z (DAILY FOR 3 DAYS)
     Route: 048
     Dates: start: 20220216, end: 20220428
  4. ENCEQUIDAR MESYLATE MONOHYDRATE [Suspect]
     Active Substance: ENCEQUIDAR MESYLATE MONOHYDRATE
     Dosage: 15 MG, Z (DAILY FOR 3 DAYS)
     Route: 048
     Dates: start: 20220216, end: 20220428
  5. CARBOPLATIN [Suspect]
     Active Substance: CARBOPLATIN
     Indication: Breast cancer
     Dosage: 113.55 MG, Z (QW)
     Route: 042
     Dates: start: 20220216, end: 20220216
  6. CARBOPLATIN [Suspect]
     Active Substance: CARBOPLATIN
     Dosage: 113.55 MG, Z (QW)
     Route: 042
     Dates: start: 20220420, end: 20220420
  7. ALBUTEROL SULFATE [Concomitant]
     Active Substance: ALBUTEROL SULFATE
     Indication: Product used for unknown indication
     Dosage: 2 PUFF(S)
     Route: 055
     Dates: start: 20220415, end: 20220615
  8. VITAMIN C [Concomitant]
     Active Substance: ASCORBIC ACID
     Indication: General physical health deterioration
     Dosage: 500 MG
     Route: 048
     Dates: start: 20120101
  9. BIOTIN [Concomitant]
     Active Substance: BIOTIN
     Indication: General physical health deterioration
     Dosage: 1 DF
     Route: 048
     Dates: start: 20120101
  10. BUDESONIDE [Concomitant]
     Active Substance: BUDESONIDE
     Indication: Cough
     Dosage: UNK
     Route: 048
     Dates: start: 20220415, end: 20220628
  11. VITAMIN D3 [Concomitant]
     Active Substance: CHOLECALCIFEROL
     Indication: General physical health deterioration
     Dosage: 1 DF (TABLET)
     Route: 048
     Dates: start: 20120101
  12. UBIDECARENONE [Concomitant]
     Active Substance: UBIDECARENONE
     Indication: Hyperlipidaemia
     Dosage: 100 MG, QD
     Route: 048
     Dates: start: 20180101
  13. VITAMIN B12 [Concomitant]
     Active Substance: CYANOCOBALAMIN
     Indication: General physical health deterioration
     Dosage: 1 DF
     Route: 048
     Dates: start: 20120101
  14. DICYCLOMINE HYDROCHLORIDE [Concomitant]
     Active Substance: DICYCLOMINE HYDROCHLORIDE
     Indication: Abdominal pain
     Dosage: 20 MG, Z TID PRN
     Route: 048
     Dates: start: 20220301, end: 20220506
  15. FAMOTIDINE [Concomitant]
     Active Substance: FAMOTIDINE
     Indication: Nausea
     Dosage: 20 MG, QD
     Route: 048
     Dates: start: 20220308, end: 20220506
  16. FLUOCINONIDE [Concomitant]
     Active Substance: FLUOCINONIDE
     Indication: Product used for unknown indication
     Dosage: UNK
     Route: 061
     Dates: start: 20220408
  17. GRANISETRON HYDROCHLORIDE [Concomitant]
     Active Substance: GRANISETRON HYDROCHLORIDE
     Indication: Nausea
     Dosage: 1 MG, BID
     Route: 048
     Dates: start: 20220223
  18. IRON [Concomitant]
     Active Substance: IRON
     Indication: Anaemia
     Dosage: UNK
     Route: 061
     Dates: start: 20210602
  19. LIDOCAINE\PRILOCAINE [Concomitant]
     Active Substance: LIDOCAINE\PRILOCAINE
     Indication: Central venous catheterisation
     Dosage: APPLY TO PORT SITE APPROXIMATELY 45 MINUTES PRIOR TO PORT ACCESS
     Route: 061
     Dates: start: 20220216
  20. LYSINE [Concomitant]
     Active Substance: LYSINE
     Indication: Anaemia
     Dosage: UNK
     Route: 048
     Dates: start: 20210602
  21. MAGNESIUM OXIDE [Concomitant]
     Active Substance: MAGNESIUM OXIDE
     Indication: Insomnia
     Dosage: 400 MG
     Route: 048
     Dates: start: 20190218
  22. BACTROBAN [Concomitant]
     Active Substance: MUPIROCIN\MUPIROCIN CALCIUM
     Indication: Product used for unknown indication
     Dosage: UNK
     Route: 061
     Dates: start: 20220407
  23. FILGRASTIM [Concomitant]
     Active Substance: FILGRASTIM
     Indication: Neutropenia
     Dosage: UNK
     Route: 042
     Dates: start: 20210312
  24. PANTOPRAZOLE SODIUM [Concomitant]
     Active Substance: PANTOPRAZOLE SODIUM
     Indication: Gastrooesophageal reflux disease
     Dosage: 40 MG, BID
     Route: 048
     Dates: start: 20210616
  25. LACTOBACILLUS ACIDOPHILUS [Concomitant]
     Active Substance: LACTOBACILLUS ACIDOPHILUS
     Indication: General physical condition
     Dosage: UNK
     Route: 048
     Dates: start: 20200101
  26. PROCHLORPERAZINE MALEATE [Concomitant]
     Active Substance: PROCHLORPERAZINE MALEATE
     Indication: Nausea
     Dosage: 10 MG, PRN
     Route: 048
     Dates: start: 20220308
  27. DOCUSATE SODIUM\SENNOSIDES [Concomitant]
     Active Substance: DOCUSATE SODIUM\SENNOSIDES
     Indication: Constipation
     Dosage: 1 DF, Z-NIGHTLY
     Route: 048
     Dates: start: 20220323
  28. PULMICORT TURBUHALER [Concomitant]
     Active Substance: BUDESONIDE
     Indication: Product used for unknown indication

REACTIONS (2)
  - Acute kidney injury [Recovered/Resolved with Sequelae]
  - Dyspnoea [Not Recovered/Not Resolved]

NARRATIVE: CASE EVENT DATE: 20220429
